APPROVED DRUG PRODUCT: ZYFREL
Active Ingredient: ACETAMINOPHEN; HYDROCODONE BITARTRATE
Strength: 325MG/15ML;7.5MG/15ML
Dosage Form/Route: SOLUTION;ORAL
Application: A090468 | Product #001
Applicant: CYPRESS PHARMACEUTICAL INC
Approved: Apr 14, 2016 | RLD: No | RS: No | Type: DISCN